FAERS Safety Report 5920142-9 (Version None)
Quarter: 2008Q4

REPORT INFORMATION
  Report Type: 
  Country: None (occurrence: None)
  Receive Date: 20081015
  Receipt Date: 20081015
  Transmission Date: 20090506
  Serious: No
  Sender: FDA-Public Use
  Company Number: None

PATIENT
  Age: 94 Year
  Sex: Male

DRUGS (1)
  1. PIPERACILLIN AND TAZOBACTAM [Suspect]
     Indication: INFECTION
     Dosage: 3.375 GM Q1D IV
     Route: 042
     Dates: start: 20081007, end: 20081007

REACTIONS (3)
  - PRURITUS [None]
  - PYREXIA [None]
  - RASH [None]
